FAERS Safety Report 5986688-2 (Version None)
Quarter: 2008Q4

REPORT INFORMATION
  Report Type: 
  Country: None (occurrence: None)
  Receive Date: 20081209
  Receipt Date: 20080909
  Transmission Date: 20090506
  Serious: No
  Sender: FDA-Public Use
  Company Number: US-AMGEN-KDL306770

PATIENT
  Sex: Female

DRUGS (1)
  1. ENBREL [Suspect]
     Indication: RHEUMATOID ARTHRITIS
     Route: 058
     Dates: start: 20071215

REACTIONS (5)
  - ALOPECIA [None]
  - BACK PAIN [None]
  - PAIN IN EXTREMITY [None]
  - SENSITIVITY OF TEETH [None]
  - TOOTH DISORDER [None]
